FAERS Safety Report 4350039-X (Version None)
Quarter: 2004Q2

REPORT INFORMATION
  Report Type: 
  Country: None (occurrence: None)
  Receive Date: 20040429
  Receipt Date: 20020322
  Transmission Date: 20050107
  Serious: Yes (Other)
  Sender: FDA-Public Use
  Company Number: PHBS2002IN04037

PATIENT
  Age: 34 Year
  Sex: Female

DRUGS (7)
  1. GLEEVEC [Suspect]
     Indication: CHRONIC MYELOID LEUKAEMIA
     Dosage: 400 MG, QD
     Route: 048
     Dates: start: 20011201
  2. PAROXETINE HCL [Concomitant]
     Dosage: 40 MG/DAY
     Route: 048
  3. ALPRAZOLAM [Concomitant]
     Dosage: UNK, UNK
     Route: 048
  4. ALPRAZOLAM [Concomitant]
     Dosage: 3 MG/DAY
     Route: 048
  5. HYDROCHLOROTHIAZIDE [Concomitant]
  6. FOLIC ACID [Concomitant]
  7. FERROUS SULFATE TAB [Concomitant]

REACTIONS (3)
  - ANXIETY [None]
  - PANIC ATTACK [None]
  - WEIGHT INCREASED [None]
